FAERS Safety Report 18823346 (Version 2)
Quarter: 2021Q1

REPORT INFORMATION
  Report Type: Spontaneous
  Country: US (occurrence: US)
  Receive Date: 20210202
  Receipt Date: 20210325
  Transmission Date: 20210419
  Serious: No
  Sender: FDA-Public Use
  Company Number: US-ASTRAZENECA-2021A010831

PATIENT
  Age: 26631 Day
  Sex: Female
  Weight: 71.7 kg

DRUGS (3)
  1. ATORVASTATIN [Concomitant]
     Active Substance: ATORVASTATIN
     Indication: BLOOD CHOLESTEROL
  2. AMLODEPINE [Concomitant]
     Indication: HYPERTENSION
  3. SYMBICORT [Suspect]
     Active Substance: BUDESONIDE\FORMOTEROL FUMARATE DIHYDRATE
     Indication: LUNG DISORDER
     Dosage: 80/4.5MCG, TWO SPRAYS TWICE A DAY
     Route: 055
     Dates: start: 20210116

REACTIONS (4)
  - Wrong technique in device usage process [Unknown]
  - Cough [Unknown]
  - Intentional device misuse [Unknown]
  - Drug delivery system issue [Unknown]

NARRATIVE: CASE EVENT DATE: 20210115
